FAERS Safety Report 8008880-8 (Version None)
Quarter: 2011Q4

REPORT INFORMATION
  Report Type: 
  Country: None (occurrence: None)
  Receive Date: 20111227
  Receipt Date: 20111221
  Transmission Date: 20120403
  Serious: Yes (Life-Threatening)
  Sender: FDA-Public Use
  Company Number: FR-ASTRAZENECA-2011SE77646

PATIENT
  Age: 48 Year
  Sex: Female

DRUGS (2)
  1. DIPRIVAN [Suspect]
     Route: 042
     Dates: start: 20111127, end: 20111127
  2. CELOCURINE [Suspect]
     Route: 042
     Dates: start: 20111127, end: 20111127

REACTIONS (4)
  - ANAPHYLACTIC SHOCK [None]
  - ERYTHEMA [None]
  - BRONCHOSPASM [None]
  - HYPOTENSION [None]
